FAERS Safety Report 7156495-6 (Version None)
Quarter: 2010Q4

REPORT INFORMATION
  Report Type: 
  Country: None (occurrence: None)
  Receive Date: 20101214
  Receipt Date: 20100216
  Transmission Date: 20110411
  Serious: No
  Sender: FDA-Public Use
  Company Number: US-ASTRAZENECA-2009SE26635

PATIENT
  Age: 729 Month
  Sex: Female
  Weight: 66.7 kg

DRUGS (9)
  1. CRESTOR [Suspect]
     Indication: LIPIDS ABNORMAL
     Route: 048
     Dates: start: 20091112, end: 20091116
  2. CRESTOR [Suspect]
     Route: 048
     Dates: start: 20091101
  3. PLAVIX [Concomitant]
  4. PEPCID [Concomitant]
  5. HYDROCHLOROTHIAZIDE [Concomitant]
  6. MICARDIS [Concomitant]
  7. COREG [Concomitant]
  8. METFORMIN [Concomitant]
  9. XANAX [Concomitant]

REACTIONS (3)
  - LOW DENSITY LIPOPROTEIN INCREASED [None]
  - NAUSEA [None]
  - WEIGHT INCREASED [None]
